FAERS Safety Report 7238937-0 (Version None)
Quarter: 2011Q1

REPORT INFORMATION
  Report Type: 
  Country: None (occurrence: None)
  Receive Date: 20110121
  Receipt Date: 20110113
  Transmission Date: 20110831
  Serious: No
  Sender: FDA-Public Use
  Company Number: US-B.I. PHARMACEUTICALS,INC./RIDGEFIELD-2011-BP-01188BP

PATIENT
  Age: 81 Year
  Sex: Male

DRUGS (13)
  1. SPIRIVA [Suspect]
     Indication: CHRONIC OBSTRUCTIVE PULMONARY DISEASE
     Dosage: 18 MCG
  2. DOXAZOSIN [Concomitant]
     Dosage: 2 MG
  3. DILTIAZEM [Concomitant]
     Dosage: 180 MG
  4. TRIAMTERENE AND HYDROCHLOROTHIAZIDE [Concomitant]
  5. LISINOPRIL [Concomitant]
     Dosage: 30 MG
  6. LEVOTHROID [Concomitant]
     Dosage: 150 MG
  7. SIMVASTATIN [Concomitant]
     Dosage: 10 MG
  8. NEXIUM [Concomitant]
     Dosage: 40 MG
  9. BUPROPION HCL [Concomitant]
     Dosage: 300 MG
  10. PRADAXA [Suspect]
     Indication: ATRIAL FIBRILLATION
     Dates: start: 20110101, end: 20110101
  11. IBUPROFEN [Concomitant]
     Dosage: 800 MG
  12. TAMSULOSIN HCL [Concomitant]
  13. FLUOXETINE [Concomitant]

REACTIONS (1)
  - RECTAL HAEMORRHAGE [None]
